FAERS Safety Report 11185102 (Version 1)
Quarter: 2015Q2

REPORT INFORMATION
  Report Type: Spontaneous
  Country: JP (occurrence: JP)
  Receive Date: 20150612
  Receipt Date: 20150612
  Transmission Date: 20150821
  Serious: Yes (Other)
  Sender: FDA-Public Use
  Company Number: JP-PFIZER INC-2015194307

PATIENT
  Age: 70 Year
  Sex: Female

DRUGS (1)
  1. ZYVOX [Suspect]
     Active Substance: LINEZOLID
     Dosage: UNK
     Route: 048

REACTIONS (6)
  - Disorientation [Unknown]
  - Seizure [Unknown]
  - Restlessness [Unknown]
  - Tremor [Unknown]
  - Somnolence [Unknown]
  - Loss of consciousness [Unknown]
